FAERS Safety Report 13075912 (Version 1)
Quarter: 2016Q4

REPORT INFORMATION
  Report Type: Spontaneous
  Country: US (occurrence: US)
  Receive Date: 20161229
  Receipt Date: 20161229
  Transmission Date: 20170207
  Serious: No
  Sender: FDA-Public Use
  Company Number: None

PATIENT
  Age: 6 Year
  Sex: Male
  Weight: 20.43 kg

DRUGS (1)
  1. PROAIR HFA [Suspect]
     Active Substance: ALBUTEROL SULFATE
     Indication: ASTHMA
     Dosage: 2 INHALATIONS EVERY 4 HOURS AS NEEDED RESPIRATORY (INHALATION)
     Route: 055

REACTIONS (2)
  - Asthma [None]
  - Product packaging quantity issue [None]

NARRATIVE: CASE EVENT DATE: 20161214
